FAERS Safety Report 26162604 (Version 1)
Quarter: 2025Q4

REPORT INFORMATION
  Report Type: Spontaneous
  Country: US (occurrence: US)
  Receive Date: 20251216
  Receipt Date: 20251216
  Transmission Date: 20260118
  Serious: Yes (Hospitalization)
  Sender: MYLAN
  Company Number: US-MYLANLABS-2025M1106469

PATIENT
  Age: 39 Year
  Sex: Female

DRUGS (3)
  1. SPIRONOLACTONE [Suspect]
     Active Substance: SPIRONOLACTONE
     Indication: Acute kidney injury
     Dosage: UNK
  2. PREDNISONE [Suspect]
     Active Substance: PREDNISONE
     Indication: Congenital nephrotic syndrome
     Dosage: 80 MILLIGRAM, QD
  3. FUROSEMIDE [Suspect]
     Active Substance: FUROSEMIDE
     Indication: Acute kidney injury
     Dosage: UNK

REACTIONS (2)
  - Drug ineffective [Unknown]
  - Product prescribing issue [Unknown]
